APPROVED DRUG PRODUCT: PEG-3350, SODIUM SULFATE, SODIUM CHLORIDE, POTASSIUM CHLORIDE, SODIUM ASCORBATE AND ASCORBIC ACID
Active Ingredient: ASCORBIC ACID; POLYETHYLENE GLYCOL 3350; POTASSIUM CHLORIDE; SODIUM ASCORBATE; SODIUM CHLORIDE; SODIUM SULFATE
Strength: 4.7GM;100GM;1.015GM;5.9GM;2.691GM;7.5GM
Dosage Form/Route: FOR SOLUTION;ORAL
Application: A090145 | Product #001 | TE Code: AA
Applicant: NOVEL LABORATORIES INC
Approved: Jan 25, 2012 | RLD: No | RS: No | Type: RX